FAERS Safety Report 24622775 (Version 1)
Quarter: 2024Q4

REPORT INFORMATION
  Report Type: Spontaneous
  Country: US (occurrence: US)
  Receive Date: 20241115
  Receipt Date: 20241115
  Transmission Date: 20250115
  Serious: Yes (Hospitalization, Disabling)
  Sender: SANDOZ
  Company Number: US-002147023-NVSC2024US219069

PATIENT
  Age: 71 Year
  Sex: Female

DRUGS (8)
  1. AMPHOTERICIN B [Suspect]
     Active Substance: AMPHOTERICIN B
     Indication: Scedosporium infection
     Dosage: UNK
     Route: 057
  2. AMPHOTERICIN B [Suspect]
     Active Substance: AMPHOTERICIN B
     Dosage: UNK
     Route: 065
  3. INDOMETHACIN [Suspect]
     Active Substance: INDOMETHACIN
     Indication: Scleritis
     Dosage: UNK
     Route: 048
  4. MOXIFLOXACIN [Suspect]
     Active Substance: MOXIFLOXACIN
     Indication: Scleritis
     Dosage: UNK (TOPICAL)
     Route: 050
  5. MOXIFLOXACIN [Suspect]
     Active Substance: MOXIFLOXACIN
     Dosage: UNK, QID
     Route: 065
  6. NATAMYCIN [Suspect]
     Active Substance: NATAMYCIN
     Indication: Scleritis
     Dosage: UNK (TOPICAL)
     Route: 050
  7. PREDNISOLONE ACETATE [Suspect]
     Active Substance: PREDNISOLONE ACETATE
     Indication: Iritis
     Dosage: UNK (TOPICAL)
     Route: 050
  8. VORICONAZOLE [Suspect]
     Active Substance: VORICONAZOLE
     Indication: Scleritis
     Dosage: 200 MG, BID
     Route: 065

REACTIONS (8)
  - Eye abscess [Unknown]
  - Uveal prolapse [Unknown]
  - Scleritis [Unknown]
  - Eye pain [Unknown]
  - Ocular hyperaemia [Unknown]
  - Scleral disorder [Unknown]
  - Disease progression [Unknown]
  - Drug ineffective [Unknown]
